FAERS Safety Report 8786369 (Version 2)
Quarter: 2012Q4

REPORT INFORMATION
  Report Type: 
  Country: FR (occurrence: FR)
  Receive Date: 20120914
  Receipt Date: 20121217
  Transmission Date: 20130627
  Serious: Yes (Hospitalization)
  Sender: FDA-Public Use
  Company Number: FR-PFIZER INC-2012224870

PATIENT
  Age: 21 Year
  Sex: Female

DRUGS (4)
  1. XANAX [Suspect]
     Indication: DEPRESSION
     Dosage: UNK
     Route: 048
     Dates: start: 201205, end: 20120721
  2. SEROPLEX [Suspect]
     Indication: ANXIODEPRESSIVE SYNDROME
     Dosage: UNK
     Route: 048
     Dates: start: 201205, end: 20120721
  3. YAZ [Suspect]
     Indication: CONTRACEPTION
     Dosage: 1 DF, 1x/day
     Route: 048
     Dates: start: 201205, end: 20120721
  4. YAZ [Suspect]
     Dosage: UNK

REACTIONS (1)
  - Bone marrow failure [Not Recovered/Not Resolved]
